FAERS Safety Report 9099306 (Version 1)
Quarter: 2013Q1

REPORT INFORMATION
  Report Type: Spontaneous
  Country: US (occurrence: US)
  Receive Date: 20130214
  Receipt Date: 20130214
  Transmission Date: 20140127
  Serious: No
  Sender: FDA-Public Use
  Company Number: US-COVIDIEN/TYCO HEALTHCARE/MALLINCKRODT-T201204132

PATIENT
  Age: 50 Year
  Sex: Female

DRUGS (3)
  1. FENTANYL TRANSDERMAL SYSTEM [Suspect]
     Indication: FIBROMYALGIA
     Dosage: 100 UG/HR,Q 48 HOURS
     Route: 062
     Dates: start: 2011
  2. NORCO [Concomitant]
     Indication: BREAKTHROUGH PAIN
     Dosage: UP TO 4/DAY PRN
  3. FENTANYL [Concomitant]
     Dosage: 100 UG/HR, UNK

REACTIONS (3)
  - Application site burn [Not Recovered/Not Resolved]
  - Application site reaction [Not Recovered/Not Resolved]
  - Drug ineffective [Not Recovered/Not Resolved]
